FAERS Safety Report 22310513 (Version 1)
Quarter: 2023Q2

REPORT INFORMATION
  Report Type: Spontaneous
  Country: SE (occurrence: SE)
  Receive Date: 20230511
  Receipt Date: 20230511
  Transmission Date: 20230722
  Serious: Yes (Hospitalization)
  Sender: FDA-Public Use
  Company Number: None

PATIENT
  Age: 59 Year
  Sex: Male

DRUGS (3)
  1. ZOLPIDEM [Suspect]
     Active Substance: ZOLPIDEM TARTRATE
     Indication: Insomnia
     Dosage: UNK, (DOSERING: 20)
     Route: 048
     Dates: start: 20141218, end: 20230101
  2. ZOLPIDEM [Suspect]
     Active Substance: ZOLPIDEM TARTRATE
     Indication: Tinnitus
  3. OXAZEPAM [Suspect]
     Active Substance: OXAZEPAM
     Indication: Tinnitus
     Dosage: 10 MG, (0.33 DAYS), (1 X3)
     Route: 048
     Dates: start: 20141218, end: 20230101

REACTIONS (2)
  - Tinnitus [Recovering/Resolving]
  - Overdose [Recovering/Resolving]

NARRATIVE: CASE EVENT DATE: 20141218
